FAERS Safety Report 15198512 (Version 1)
Quarter: 2018Q3

REPORT INFORMATION
  Report Type: Spontaneous
  Country: US (occurrence: US)
  Receive Date: 20180627
  Receipt Date: 20180627
  Transmission Date: 20181010
  Serious: Yes (Life-Threatening, Disabling, Other)
  Sender: FDA-Public Use
  Company Number: None

PATIENT
  Age: 73 Year
  Sex: Male
  Weight: 120.15 kg

DRUGS (1)
  1. FLUTICASONE PROPIONATE NASAL SPRAY LOT NJ4501 [Suspect]
     Active Substance: FLUTICASONE PROPIONATE
     Indication: DYSPNOEA
     Dosage: ?          QUANTITY:150 SPRAY(S);?
     Route: 045
     Dates: start: 20130101

REACTIONS (3)
  - Dyspnoea [None]
  - PO2 decreased [None]
  - Condition aggravated [None]

NARRATIVE: CASE EVENT DATE: 20180525
